FAERS Safety Report 7961921-6 (Version None)
Quarter: 2011Q4

REPORT INFORMATION
  Report Type: 
  Country: None (occurrence: None)
  Receive Date: 20111202
  Receipt Date: 20111202
  Transmission Date: 20120403
  Serious: Yes (Other)
  Sender: FDA-Public Use
  Company Number: None

PATIENT
  Sex: Male
  Weight: 68.9467 kg

DRUGS (1)
  1. UROXATRAL [Suspect]
     Dosage: 1 TAB QHS P.O.
     Route: 048
     Dates: start: 20110225

REACTIONS (2)
  - HEAD INJURY [None]
  - FALL [None]
